FAERS Safety Report 5469184-0 (Version None)
Quarter: 2007Q3

REPORT INFORMATION
  Report Type: 
  Country: None (occurrence: None)
  Receive Date: 20070927
  Receipt Date: 20070924
  Transmission Date: 20080115
  Serious: Yes (Hospitalization)
  Sender: FDA-Public Use
  Company Number: CH-JNJFOC-20051004584

PATIENT
  Sex: Male
  Weight: 59.1 kg

DRUGS (18)
  1. TMC114 [Suspect]
     Dosage: 1 DOSE = 2 TABLETS
     Dates: start: 20040824, end: 20051109
  2. TMC114 [Suspect]
     Indication: HIV INFECTION
     Dosage: 1 DOSE = 2 TABLETS TAKEN IN THE MORNING
     Dates: start: 20040824, end: 20051109
  3. RITONAVIR [Suspect]
     Dosage: 1 DOSE = 1 CAPSULE
     Route: 048
     Dates: start: 20011001, end: 20051109
  4. RITONAVIR [Suspect]
     Dosage: 1 DOSE = 1 CAPSULE IN THE MORNING
     Route: 048
     Dates: start: 20011001, end: 20051109
  5. RITONAVIR [Suspect]
     Indication: HIV INFECTION
     Route: 048
     Dates: start: 20011001, end: 20051109
  6. DIDANOSINE [Concomitant]
     Route: 048
     Dates: start: 20011001, end: 20051026
  7. DIDANOSINE [Concomitant]
     Indication: HIV INFECTION
     Route: 048
     Dates: start: 20011001, end: 20051026
  8. TENOFOVIR DISOPROXIL FUMARATE [Concomitant]
     Indication: HIV INFECTION
     Route: 048
  9. LAMIVUDINE [Concomitant]
     Route: 048
  10. LAMIVUDINE [Concomitant]
     Indication: HIV INFECTION
     Route: 048
  11. PRAVASTATIN [Concomitant]
     Indication: HYPERLIPIDAEMIA
     Dosage: STARTED PRE TRIAL
     Route: 048
  12. BACTRIM [Concomitant]
     Indication: ANTIFUNGAL PROPHYLAXIS
     Dosage: STARTED PRE TRIAL
     Route: 048
  13. ALDACTONE [Concomitant]
  14. TORSEMIDE [Concomitant]
  15. NEXIUM [Concomitant]
  16. INDERAL [Concomitant]
  17. 3TC [Concomitant]
     Indication: HIV INFECTION
  18. FUZEON [Concomitant]
     Indication: HIV INFECTION
     Route: 058

REACTIONS (2)
  - ASCITES [None]
  - LIVER DISORDER [None]
